FAERS Safety Report 4984152-0 (Version None)
Quarter: 2006Q2

REPORT INFORMATION
  Report Type: 
  Country: None (occurrence: None)
  Receive Date: 20060425
  Receipt Date: 20060425
  Transmission Date: 20061013
  Serious: No
  Sender: FDA-Public Use
  Company Number: None

PATIENT
  Age: 66 Year
  Sex: Male

DRUGS (1)
  1. ARAVA [Suspect]
     Dosage: 10 MG  DAILY  PO
     Route: 048
     Dates: start: 20060222, end: 20060322

REACTIONS (3)
  - AGITATION [None]
  - ANXIETY [None]
  - TREMOR [None]
